FAERS Safety Report 4749498-X (Version None)
Quarter: 2005Q3

REPORT INFORMATION
  Report Type: 
  Country: None (occurrence: None)
  Receive Date: 20050822
  Receipt Date: 20050726
  Transmission Date: 20060218
  Serious: Yes (Life-Threatening)
  Sender: FDA-Public Use
  Company Number: 2005AP04087

PATIENT
  Sex: Male
  Weight: 88 kg

DRUGS (18)
  1. DIPRIVAN [Suspect]
     Indication: SEDATION
     Route: 042
     Dates: start: 20050719, end: 20050720
  2. DIPRIVAN [Suspect]
     Indication: ANAESTHESIA
     Route: 042
     Dates: start: 20050719, end: 20050720
  3. DIPRIVAN [Suspect]
     Route: 042
     Dates: start: 20050722
  4. DIPRIVAN [Suspect]
     Route: 042
     Dates: start: 20050722
  5. SUCCINYLCHOLINE CHLORIDE [Suspect]
     Indication: INTUBATION
     Route: 042
     Dates: start: 20050719, end: 20050719
  6. MIDAZOLAM HCL [Suspect]
     Indication: ANAESTHESIA
     Dosage: MAXIMUM OF 15 MG/HR
     Route: 042
     Dates: start: 20050719, end: 20050719
  7. MIOBLOCK [Suspect]
     Indication: SEDATION
     Route: 042
     Dates: start: 20050719
  8. MIOBLOCK [Suspect]
     Route: 042
     Dates: start: 20050719
  9. MIOBLOCK [Suspect]
     Dosage: 4-8 MG GIVEN 5-6 TIMES/DAY
     Route: 042
     Dates: start: 20050720
  10. FENTANEST [Suspect]
     Indication: ANAESTHESIA
     Dates: start: 20050720, end: 20050722
  11. ALLOZYM [Concomitant]
     Indication: HYPERURICAEMIA
     Route: 048
     Dates: start: 20020701, end: 20050719
  12. GASPORT [Concomitant]
     Indication: GASTRIC ULCER
     Route: 048
     Dates: start: 20050717, end: 20050719
  13. ASPIRIN [Concomitant]
     Indication: MYOCARDIAL ISCHAEMIA
     Route: 048
     Dates: start: 20050717, end: 20050719
  14. VOLTAREN [Concomitant]
     Indication: GOUT
     Route: 054
     Dates: start: 20050717
  15. URINORM [Concomitant]
     Indication: HYPERURICAEMIA
     Route: 048
     Dates: start: 20050719, end: 20050719
  16. URALYT [Concomitant]
     Indication: HYPERURICAEMIA
     Route: 048
     Dates: start: 20050719, end: 20050719
  17. MUSCULAX [Concomitant]
     Route: 042
     Dates: start: 20050719, end: 20050719
  18. CEFAMEZIN [Concomitant]
     Indication: PNEUMONIA
     Route: 042
     Dates: start: 20050719, end: 20050721

REACTIONS (3)
  - DRUG INEFFECTIVE [None]
  - PYREXIA [None]
  - RHABDOMYOLYSIS [None]
